FAERS Safety Report 7236798-7 (Version None)
Quarter: 2011Q1

REPORT INFORMATION
  Report Type: 
  Country: None (occurrence: None)
  Receive Date: 20110120
  Receipt Date: 20110118
  Transmission Date: 20110831
  Serious: Yes (Hospitalization)
  Sender: FDA-Public Use
  Company Number: GB-ABBOTT-11P-167-0699011-00

PATIENT
  Age: 40 Year
  Sex: Male

DRUGS (2)
  1. KLARICID [Suspect]
     Indication: LOWER RESPIRATORY TRACT INFECTION
     Route: 048
     Dates: start: 20101229, end: 20110104
  2. AMOXICILLIN [Concomitant]
     Indication: LOWER RESPIRATORY TRACT INFECTION
     Route: 048
     Dates: start: 20101224, end: 20101229

REACTIONS (2)
  - CHOLECYSTITIS [None]
  - JAUNDICE CHOLESTATIC [None]
